FAERS Safety Report 5054183-3 (Version None)
Quarter: 2006Q3

REPORT INFORMATION
  Report Type: 
  Country: None (occurrence: None)
  Receive Date: 20060713
  Receipt Date: 20060626
  Transmission Date: 20061208
  Serious: Yes (Hospitalization)
  Sender: FDA-Public Use
  Company Number: 2006-01468

PATIENT
  Age: 63 Year

DRUGS (7)
  1. VELCADE [Suspect]
     Indication: MULTIPLE MYELOMA
     Dosage: INTRAVENOUS
     Route: 042
  2. DOXORUBICIN HCL [Suspect]
     Indication: MULTIPLE MYELOMA
  3. DEXAMETHASONE [Suspect]
     Indication: MULTIPLE MYELOMA
  4. METAMIZOLE SODIUM (METAMIZOLE SODIUM) DROP [Concomitant]
  5. TRAMADOL HCL [Concomitant]
  6. PANTOZOL (PANTOPRAZOLE SODIUM) [Concomitant]
  7. FUROSEMIDE [Concomitant]

REACTIONS (1)
  - HEPATITIS [None]
